FAERS Safety Report 20924558 (Version 1)
Quarter: 2022Q2

REPORT INFORMATION
  Report Type: Spontaneous
  Country: US (occurrence: US)
  Receive Date: 20220607
  Receipt Date: 20220607
  Transmission Date: 20220721
  Serious: Yes (Death, Other)
  Sender: FDA-Public Use
  Company Number: US-CURIUM-2022000284

PATIENT
  Age: 62 Year
  Sex: Female

DRUGS (4)
  1. SODIUM IODIDE I-131 [Suspect]
     Active Substance: SODIUM IODIDE I-131
     Indication: Thyroid cancer
     Route: 065
  2. SODIUM IODIDE I-131 [Suspect]
     Active Substance: SODIUM IODIDE I-131
     Indication: Thyroid cancer
     Route: 065
  3. SODIUM IODIDE I-131 [Suspect]
     Active Substance: SODIUM IODIDE I-131
     Indication: Thyroid cancer
     Dosage: 2 ADMINISTRATIONS IN 3 YEARS
     Route: 065
  4. SODIUM IODIDE I-131 [Suspect]
     Active Substance: SODIUM IODIDE I-131
     Indication: Thyroid cancer
     Route: 065

REACTIONS (3)
  - Metastases to bone [Fatal]
  - Metastases to lung [Fatal]
  - Metastases to adrenals [Fatal]
